FAERS Safety Report 8179021-1 (Version None)
Quarter: 2012Q1

REPORT INFORMATION
  Report Type: 
  Country: None (occurrence: None)
  Receive Date: 20120302
  Receipt Date: 20120221
  Transmission Date: 20120608
  Serious: Yes (Other)
  Sender: FDA-Public Use
  Company Number: US-BIOGENIDEC-2012BI007008

PATIENT
  Sex: Female

DRUGS (3)
  1. AVONEX [Suspect]
     Indication: MULTIPLE SCLEROSIS
     Route: 030
  2. AVONEX [Suspect]
     Route: 030
     Dates: start: 20000101
  3. AVONEX [Suspect]
     Route: 030
     Dates: start: 19980515

REACTIONS (7)
  - BLADDER DYSFUNCTION [None]
  - NEUROLOGICAL SYMPTOM [None]
  - COGNITIVE DISORDER [None]
  - BLOOD PRESSURE FLUCTUATION [None]
  - INFLUENZA [None]
  - FUNCTIONAL GASTROINTESTINAL DISORDER [None]
  - FATIGUE [None]
